FAERS Safety Report 6619922-6 (Version None)
Quarter: 2010Q1

REPORT INFORMATION
  Report Type: 
  Country: None (occurrence: None)
  Receive Date: 20100304
  Receipt Date: 20100222
  Transmission Date: 20100710
  Serious: Yes (Hospitalization, Disabling)
  Sender: FDA-Public Use
  Company Number: ALK_01183_2010

PATIENT
  Sex: Male
  Weight: 93.441 kg

DRUGS (7)
  1. VIVITROL [Suspect]
     Indication: ALCOHOLISM
     Dosage: (380 MG 1X/MONTH INTRAMUSCULAR)
     Route: 030
     Dates: start: 20080101
  2. PREVACID [Concomitant]
  3. CYMBALTA [Concomitant]
  4. CLONAZEPAM [Concomitant]
  5. ZYPREXA [Concomitant]
  6. LUNESTA [Concomitant]
  7. REQUIP [Concomitant]

REACTIONS (4)
  - ALCOHOL USE [None]
  - ARTHRALGIA [None]
  - JOINT LOCK [None]
  - WALKING AID USER [None]
